FAERS Safety Report 5352434-9 (Version None)
Quarter: 2007Q2

REPORT INFORMATION
  Report Type: 
  Country: None (occurrence: None)
  Receive Date: 20070611
  Receipt Date: 20070606
  Transmission Date: 20071010
  Serious: Yes (Hospitalization)
  Sender: FDA-Public Use
  Company Number: A0654388A

PATIENT
  Age: 61 Year
  Sex: Female

DRUGS (3)
  1. AVANDIA [Suspect]
     Dosage: 8MG PER DAY
     Route: 048
     Dates: start: 20040401, end: 20061101
  2. LASIX [Concomitant]
  3. VICODIN [Concomitant]

REACTIONS (5)
  - CARDIAC FAILURE CONGESTIVE [None]
  - COMA [None]
  - FLUID RETENTION [None]
  - LEG AMPUTATION [None]
  - MYOCARDIAL INFARCTION [None]
